FAERS Safety Report 9086869 (Version 1)
Quarter: 2013Q1

REPORT INFORMATION
  Report Type: Report from Study
  Country: US (occurrence: US)
  Receive Date: 20130130
  Receipt Date: 20130130
  Transmission Date: 20140127
  Serious: No
  Sender: FDA-Public Use
  Company Number: US-ABBOTT-12P-163-0979867-00

PATIENT
  Age: 49 Year
  Sex: Female

DRUGS (1)
  1. HUMIRA [Suspect]

REACTIONS (4)
  - Swelling face [Recovering/Resolving]
  - Cellulitis [Recovering/Resolving]
  - Blister [Recovering/Resolving]
  - Skin irritation [Unknown]
